FAERS Safety Report 22350692 (Version 2)
Quarter: 2023Q4

REPORT INFORMATION
  Report Type: Spontaneous
  Country: US (occurrence: US)
  Receive Date: 20230522
  Receipt Date: 20231218
  Transmission Date: 20240110
  Serious: No
  Sender: FDA-Public Use
  Company Number: US-PFIZER INC-PV202200046317

PATIENT
  Age: 79 Year
  Sex: Female
  Weight: 64.399 kg

DRUGS (2)
  1. INLYTA [Suspect]
     Active Substance: AXITINIB
     Indication: Metastases to bone
     Dosage: 5 MG
     Route: 048
  2. INLYTA [Suspect]
     Active Substance: AXITINIB
     Indication: Renal cell carcinoma
     Dosage: 5 MG, 2X/DAY TAKE 5 MG BY MOUTH 2 (TWO) TIMES DAILY. TAKE 12 HOURS APART WITH OR WITHOUT FOOD
     Route: 048
     Dates: start: 20231128

REACTIONS (1)
  - Hypoacusis [Unknown]
